FAERS Safety Report 7993683-0 (Version None)
Quarter: 2011Q4

REPORT INFORMATION
  Report Type: 
  Country: None (occurrence: None)
  Receive Date: 20111219
  Receipt Date: 20081218
  Transmission Date: 20120403
  Serious: Yes (Death)
  Sender: FDA-Public Use
  Company Number: PHHY2008US043829

PATIENT
  Sex: Female

DRUGS (1)
  1. EXELON [Suspect]

REACTIONS (1)
  - DEMENTIA ALZHEIMER'S TYPE [None]
